FAERS Safety Report 4818944-5 (Version None)
Quarter: 2005Q4

REPORT INFORMATION
  Report Type: 
  Country: None (occurrence: None)
  Receive Date: 20051103
  Receipt Date: 20050830
  Transmission Date: 20060501
  Serious: Yes (Life-Threatening)
  Sender: FDA-Public Use
  Company Number: JP-SOLVAY-00305002811

PATIENT
  Age: 375 Month
  Sex: Male

DRUGS (11)
  1. RIVOTRIL [Concomitant]
     Indication: DEPRESSION
     Dosage: DAILY DOSE: 2 MILLIGRAM(S)
     Route: 048
     Dates: start: 20041112
  2. FLUVOXAMINE MALEATE [Suspect]
     Indication: DEPRESSION
     Dosage: DAILY DOSE: 100 MILLIGRAM(S)
     Route: 048
     Dates: end: 20041216
  3. FLUVOXAMINE MALEATE [Suspect]
     Dosage: DAILY DOSE: 75 MILLIGRAM(S)
     Route: 048
     Dates: start: 20041217, end: 20041223
  4. FLUVOXAMINE MALEATE [Suspect]
     Dosage: DAILY DOSE: 50 MILLIGRAM(S)
     Route: 048
     Dates: start: 20041224, end: 20041227
  5. MEILAX [Concomitant]
     Indication: DEPRESSION
     Dosage: DAILY DOSE: 1 MILLIGRAM(S)
     Route: 048
  6. LIMAS [Suspect]
     Indication: DEPRESSION
     Dosage: DAILY DOSE: 200 MILLIGRAM(S)
     Route: 048
     Dates: start: 20041002, end: 20040101
  7. LIMAS [Suspect]
     Dosage: DAILY DOSE: 300 MILLIGRAM(S)
     Route: 048
     Dates: start: 20041217, end: 20041226
  8. LIMAS [Suspect]
     Dosage: DAILY DOSE: 200 MILLIGRAM(S)
     Route: 048
     Dates: start: 20041224, end: 20041227
  9. TETRAMIDE [Suspect]
     Indication: INSOMNIA
     Dosage: DAILY DOSE:  UNKNOWN
     Route: 048
     Dates: start: 20041001, end: 20041216
  10. TETRAMIDE [Suspect]
     Dosage: DAILY DOSE: 15 MILLIGRAM(S)
     Route: 048
     Dates: start: 20041217, end: 20041227
  11. FLUMEZIN [Suspect]
     Indication: THINKING ABNORMAL
     Dosage: DAILY DOSE: .25 MILLIGRAM(S)
     Route: 048
     Dates: start: 20041029, end: 20041227

REACTIONS (5)
  - BLOOD CREATINE PHOSPHOKINASE INCREASED [None]
  - CHROMATURIA [None]
  - HEPATIC ENZYME INCREASED [None]
  - MYALGIA [None]
  - PYREXIA [None]
